FAERS Safety Report 8506047-8 (Version None)
Quarter: 2012Q3

REPORT INFORMATION
  Report Type: 
  Country: None (occurrence: None)
  Receive Date: 20120712
  Receipt Date: 20120629
  Transmission Date: 20120928
  Serious: Yes (Death, Hospitalization, Other)
  Sender: FDA-Public Use
  Company Number: US-ROCHE-1067335

PATIENT
  Age: 67 Year
  Sex: Male
  Weight: 49.9 kg

DRUGS (13)
  1. POTASSIUM CHLORIDE [Concomitant]
  2. PROMETHAZINE [Concomitant]
  3. AVASTIN [Suspect]
     Indication: NEOPLASM MALIGNANT
     Dosage: 10 MG/KG IV OVER 30-90 MIN
     Route: 042
     Dates: start: 20111216, end: 20120309
  4. METOPROLOL TARTRATE [Concomitant]
  5. SIMVASTATIN [Concomitant]
  6. NEXIUM [Concomitant]
  7. ZOLPIDEM [Concomitant]
  8. ASPIRIN [Concomitant]
  9. SODIUM PHOSPHATE [Concomitant]
  10. POTASSIUM CHLORIDE [Concomitant]
  11. MORPHINE [Concomitant]
  12. TEMSIROLIMUS [Suspect]
     Indication: NEOPLASM MALIGNANT
     Route: 042
     Dates: start: 20111216, end: 20120330
  13. ZOFRAN [Concomitant]

REACTIONS (3)
  - DEHYDRATION [None]
  - FATIGUE [None]
  - CARDIAC ARREST [None]
